FAERS Safety Report 4821551-1 (Version None)
Quarter: 2005Q4

REPORT INFORMATION
  Report Type: 
  Country: None (occurrence: None)
  Receive Date: 20051103
  Receipt Date: 20051017
  Transmission Date: 20060501
  Serious: Yes (Hospitalization)
  Sender: FDA-Public Use
  Company Number: USA0510111106

PATIENT
  Age: 63 Year
  Sex: Female

DRUGS (3)
  1. PROZAC [Suspect]
     Indication: DEPRESSION
     Dates: start: 19930101, end: 20020101
  2. ATENOLOL [Concomitant]
  3. SYNTHROID [Concomitant]

REACTIONS (1)
  - MAJOR DEPRESSION [None]
